FAERS Safety Report 16195065 (Version 1)
Quarter: 2019Q2

REPORT INFORMATION
  Report Type: Spontaneous
  Country: IT (occurrence: IT)
  Receive Date: 20190415
  Receipt Date: 20190415
  Transmission Date: 20190711
  Serious: Yes (Other)
  Sender: FDA-Public Use
  Company Number: IT-AUROBINDO-AUR-APL-2019-019399

PATIENT

DRUGS (4)
  1. FOSFOMYCIN [Suspect]
     Active Substance: FOSFOMYCIN
     Indication: CYSTITIS
     Dosage: 2 DOSAGE FORM|(2 DF, TOTAL)
     Route: 065
  2. MAGNESIUM PIDOLATE [Suspect]
     Active Substance: MAGNESIUM PIDOLATE
     Indication: FATIGUE
     Dosage: 2 DOSAGE FORM, ONCE A DAY(2 DF, QD)
     Route: 048
     Dates: start: 201903
  3. AMOXICILLIN. [Suspect]
     Active Substance: AMOXICILLIN
     Indication: TOOTH ABSCESS
     Dosage: 12 DOSAGE FORM(12 DF, TOTAL)
     Route: 065
  4. MAGNESIUM PIDOLATE [Suspect]
     Active Substance: MAGNESIUM PIDOLATE
     Indication: DEPRESSED MOOD

REACTIONS (3)
  - Genital burning sensation [Not Recovered/Not Resolved]
  - Cystitis [Unknown]
  - Tooth abscess [Unknown]

NARRATIVE: CASE EVENT DATE: 201903
